FAERS Safety Report 13211106 (Version 2)
Quarter: 2017Q2

REPORT INFORMATION
  Report Type: Spontaneous
  Country: US (occurrence: US)
  Receive Date: 20170210
  Receipt Date: 20170420
  Transmission Date: 20170830
  Serious: No
  Sender: FDA-Public Use
  Company Number: US-PFIZER INC-2017056408

PATIENT
  Sex: Female
  Weight: 84 kg

DRUGS (4)
  1. XANAX [Concomitant]
     Active Substance: ALPRAZOLAM
     Dosage: UNK
  2. ZOLOFT [Suspect]
     Active Substance: SERTRALINE HYDROCHLORIDE
     Indication: ANXIETY
     Dosage: 20 MG, UNK
  3. XANAX [Concomitant]
     Active Substance: ALPRAZOLAM
     Indication: POST-TRAUMATIC STRESS DISORDER
     Dosage: 0.25 MG, UNK
     Dates: start: 20170203
  4. ZOLOFT [Suspect]
     Active Substance: SERTRALINE HYDROCHLORIDE
     Indication: POST-TRAUMATIC STRESS DISORDER
     Dosage: 25 MG, UNK
     Dates: start: 20170204, end: 20170205

REACTIONS (13)
  - Hypoaesthesia [Unknown]
  - Pyrexia [Unknown]
  - Pruritus [Unknown]
  - Paraesthesia [Unknown]
  - Dry mouth [Unknown]
  - Feeling cold [Unknown]
  - Pain [Unknown]
  - Muscle spasms [Unknown]
  - Tremor [Unknown]
  - Insomnia [Unknown]
  - Palpitations [Unknown]
  - Abdominal discomfort [Unknown]
  - Asthenopia [Unknown]
